FAERS Safety Report 8510106-3 (Version None)
Quarter: 2012Q3

REPORT INFORMATION
  Report Type: 
  Country: None (occurrence: None)
  Receive Date: 20120713
  Receipt Date: 20120711
  Transmission Date: 20120928
  Serious: No
  Sender: FDA-Public Use
  Company Number: US-PFIZER INC-2012166993

PATIENT
  Sex: Male
  Weight: 64.853 kg

DRUGS (10)
  1. MAGNESIUM [Concomitant]
     Dosage: UNK
  2. CHANTIX [Suspect]
     Indication: SMOKING CESSATION THERAPY
     Dosage: 0.5 MG, 1X/DAY
     Route: 048
  3. HYDROXYZINE [Concomitant]
     Indication: PRURITUS
     Dosage: UNK
  4. HYDROXYZINE [Concomitant]
     Indication: NERVOUS SYSTEM DISORDER
  5. COGENTIN [Concomitant]
     Dosage: UNK
  6. HALDOL [Concomitant]
     Dosage: UNK
  7. PHENOBARBITAL [Concomitant]
     Dosage: UNK
  8. TRAMADOL [Concomitant]
     Indication: SLEEP DISORDER
     Dosage: UNK
  9. CHANTIX [Suspect]
     Dosage: UNK
     Route: 048
  10. DILANTIN [Concomitant]
     Dosage: UNK

REACTIONS (1)
  - DRUG INEFFECTIVE [None]
